FAERS Safety Report 12638789 (Version 1)
Quarter: 2016Q3

REPORT INFORMATION
  Report Type: Spontaneous
  Country: US (occurrence: US)
  Receive Date: 20160809
  Receipt Date: 20160809
  Transmission Date: 20161109
  Serious: No
  Sender: FDA-Public Use
  Company Number: PHEH2016US019384

PATIENT
  Sex: Female
  Weight: 93.44 kg

DRUGS (2)
  1. CARBAMAZEPINE. [Suspect]
     Active Substance: CARBAMAZEPINE
     Indication: SEIZURE
     Dosage: 2 DF, TID
     Route: 065
  2. CARBAMAZEPINE. [Suspect]
     Active Substance: CARBAMAZEPINE
     Indication: TRIGEMINAL NEURALGIA
     Dosage: 5.5 DF, QD (2 TABS IN THE MORNING, 1.5 IN THE AFTERNOON, AND 2 AT BEDTIME)
     Route: 065

REACTIONS (1)
  - Vomiting [Unknown]
